FAERS Safety Report 5847880-0 (Version None)
Quarter: 2008Q3

REPORT INFORMATION
  Report Type: 
  Country: None (occurrence: None)
  Receive Date: 20080818
  Receipt Date: 20080811
  Transmission Date: 20090109
  Serious: Yes (Other)
  Sender: FDA-Public Use
  Company Number: US-BAYER-200827516NA

PATIENT
  Age: 56 Year
  Sex: Female
  Weight: 68 kg

DRUGS (8)
  1. CLIMARA [Suspect]
     Indication: MENOPAUSAL SYMPTOMS
     Route: 062
     Dates: start: 19950101
  2. ESTRADERM [Suspect]
     Indication: MENOPAUSAL SYMPTOMS
  3. PREMPRO [Suspect]
     Indication: MENOPAUSAL SYMPTOMS
     Dates: start: 19950101, end: 20000101
  4. DEPO-PROVERA [Suspect]
     Indication: MENOPAUSAL SYMPTOMS
     Dates: start: 19900101
  5. PAXIL [Concomitant]
     Indication: DEPRESSION
     Route: 048
     Dates: start: 19960101
  6. PREMPRO [Concomitant]
     Indication: DRUG USE FOR UNKNOWN INDICATION
     Route: 048
     Dates: start: 19990628
  7. VIOXX [Concomitant]
     Indication: OSTEOARTHRITIS
     Route: 048
     Dates: start: 19900101, end: 19950101
  8. EXCEDRIN (MIGRAINE) [Concomitant]
     Indication: MIGRAINE

REACTIONS (6)
  - ASTHENIA [None]
  - BALANCE DISORDER [None]
  - BONE PAIN [None]
  - BREAST CANCER [None]
  - BREAST MASS [None]
  - HOT FLUSH [None]
